FAERS Safety Report 9341898 (Version 1)
Quarter: 2013Q2

REPORT INFORMATION
  Report Type: Spontaneous
  Country: TR (occurrence: None)
  Receive Date: 20130606
  Receipt Date: 20130606
  Transmission Date: 20140414
  Serious: Yes (Hospitalization)
  Sender: FDA-Public Use
  Company Number: 2013/114

PATIENT
  Age: 6 Year
  Sex: Male
  Weight: 20 kg

DRUGS (1)
  1. VALPROIC ACID [Suspect]
     Indication: CONVULSION
     Dosage: 20 MG/KG/DAY

REACTIONS (6)
  - Pancreatitis acute [None]
  - Multi-organ failure [None]
  - Thrombocytopenia [None]
  - Coagulopathy [None]
  - Hepatic function abnormal [None]
  - Renal impairment [None]
